FAERS Safety Report 6933362-1 (Version None)
Quarter: 2010Q3

REPORT INFORMATION
  Report Type: 
  Country: None (occurrence: None)
  Receive Date: 20100820
  Receipt Date: 20100805
  Transmission Date: 20110219
  Serious: Yes (Death, Hospitalization, Other)
  Sender: FDA-Public Use
  Company Number: DE-BAYER-201031074GPV

PATIENT
  Age: 49 Year
  Sex: Female
  Weight: 50 kg

DRUGS (4)
  1. SORAFENIB OR PLACEBO [Suspect]
     Indication: OVARIAN CANCER RECURRENT
     Route: 048
     Dates: start: 20100424, end: 20100503
  2. TOPOTECAN [Suspect]
     Indication: OVARIAN CANCER RECURRENT
     Route: 042
     Dates: start: 20100419, end: 20100423
  3. DURAGESIC-100 [Concomitant]
     Indication: BACK PAIN
     Route: 003
     Dates: start: 20100302
  4. RELISTOR [Concomitant]
     Indication: CONSTIPATION
     Route: 058
     Dates: start: 20100506, end: 20100521

REACTIONS (5)
  - ILEUS [None]
  - OVARIAN CANCER [None]
  - PLEURAL EFFUSION [None]
  - PULMONARY EMBOLISM [None]
  - SUBILEUS [None]
